FAERS Safety Report 8191992-6 (Version None)
Quarter: 2012Q1

REPORT INFORMATION
  Report Type: 
  Country: None (occurrence: None)
  Receive Date: 20120307
  Receipt Date: 20120301
  Transmission Date: 20120608
  Serious: Yes (Other)
  Sender: FDA-Public Use
  Company Number: PHHY2011DE107339

PATIENT
  Sex: Male

DRUGS (3)
  1. EXELON [Suspect]
     Indication: DEMENTIA ALZHEIMER'S TYPE
     Dosage: 9.5 MG/ 24 HRS
     Route: 062
     Dates: start: 20110701, end: 20111202
  2. RAMIPRIL [Concomitant]
     Dosage: 1 DF, DAILY
     Route: 048
  3. ASPIRIN [Concomitant]
     Dosage: 100 MG, UNK

REACTIONS (2)
  - SKIN HAEMORRHAGE [None]
  - SKIN LESION [None]
